FAERS Safety Report 5269438-7 (Version None)
Quarter: 2007Q1

REPORT INFORMATION
  Report Type: 
  Country: None (occurrence: None)
  Receive Date: 20070316
  Receipt Date: 20070316
  Transmission Date: 20070707
  Serious: Yes (Other)
  Sender: FDA-Public Use
  Company Number: None

PATIENT
  Sex: Female

DRUGS (1)
  1. ORLISTAT [Suspect]
     Dosage: 120 MG

REACTIONS (4)
  - ACNE [None]
  - OILY SKIN [None]
  - SKIN DISORDER [None]
  - WEIGHT INCREASED [None]
